FAERS Safety Report 25548507 (Version 1)
Quarter: 2025Q3

REPORT INFORMATION
  Report Type: Spontaneous
  Country: US (occurrence: US)
  Receive Date: 20250714
  Receipt Date: 20250714
  Transmission Date: 20251020
  Serious: Yes (Other)
  Sender: CSL BEHRING
  Company Number: US-BEH-2025212451

PATIENT
  Sex: Female

DRUGS (1)
  1. HIZENTRA [Suspect]
     Active Substance: HUMAN IMMUNOGLOBULIN G
     Indication: IgG deficiency
     Route: 065

REACTIONS (5)
  - Appendicitis [Unknown]
  - Headache [Recovered/Resolved]
  - Hypersensitivity [Unknown]
  - Fear [Unknown]
  - Pruritus [Recovering/Resolving]
